FAERS Safety Report 9157406 (Version 1)
Quarter: 2013Q1

REPORT INFORMATION
  Report Type: Spontaneous
  Country: GB (occurrence: None)
  Receive Date: 20130212
  Receipt Date: 20130212
  Transmission Date: 20140127
  Serious: Yes (Hospitalization)
  Sender: FDA-Public Use
  Company Number: AUR-APL-2013-01134

PATIENT
  Age: 68 Year
  Sex: Female

DRUGS (2)
  1. METFORMIN (METFORMIN) [Suspect]
     Indication: PRODUCT USED FOR UNKNOWN INDICATION
  2. FLIXOTIDE [Suspect]
     Indication: PRODUCT USED FOR UNKNOWN INDICATION

REACTIONS (6)
  - Abdominal pain [None]
  - Pyrexia [None]
  - Abdominal tenderness [None]
  - White blood cell count increased [None]
  - Escherichia test positive [None]
  - Peritonitis bacterial [None]
